FAERS Safety Report 4443405-5 (Version None)
Quarter: 2004Q3

REPORT INFORMATION
  Report Type: 
  Country: None (occurrence: None)
  Receive Date: 20040901
  Receipt Date: 20040824
  Transmission Date: 20050211
  Serious: Yes (Other)
  Sender: FDA-Public Use
  Company Number: 200328272BWH

PATIENT
  Age: 65 Year
  Sex: Female
  Weight: 81.6475 kg

DRUGS (3)
  1. CIPRO [Suspect]
     Indication: INFECTION
     Dosage: SEE IMAGE
     Dates: end: 20010101
  2. CIPRO [Suspect]
     Indication: INFECTION
     Dosage: SEE IMAGE
     Dates: end: 20010101
  3. CIPRO [Suspect]
     Indication: INFECTION
     Dosage: SEE IMAGE
     Dates: start: 20040820

REACTIONS (3)
  - CATARACT [None]
  - VISION BLURRED [None]
  - VISUAL DISTURBANCE [None]
